FAERS Safety Report 5017401-3 (Version None)
Quarter: 2006Q2

REPORT INFORMATION
  Report Type: 
  Country: None (occurrence: None)
  Receive Date: 20060526
  Receipt Date: 20060512
  Transmission Date: 20061013
  Serious: Yes (Hospitalization)
  Sender: FDA-Public Use
  Company Number: POWERPMS-1

PATIENT
  Sex: Male

DRUGS (1)
  1. TEVETEN [Suspect]
     Dosage: 600 MG QD PO
     Route: 048

REACTIONS (6)
  - ANIMAL BITE [None]
  - BLOOD POTASSIUM DECREASED [None]
  - CELLULITIS [None]
  - MYALGIA [None]
  - MYOCARDIAL ISCHAEMIA [None]
  - PULMONARY FIBROSIS [None]
